FAERS Safety Report 23019619 (Version 1)
Quarter: 2023Q4

REPORT INFORMATION
  Report Type: Spontaneous
  Country: ES (occurrence: ES)
  Receive Date: 20231003
  Receipt Date: 20231003
  Transmission Date: 20240110
  Serious: Yes (Death, Hospitalization, Other)
  Sender: FDA-Public Use
  Company Number: ES-EPICPHARMA-ES-2023EPCLIT01444

PATIENT
  Age: 33 Year
  Sex: Female

DRUGS (6)
  1. VENLAFAXINE HYDROCHLORIDE [Suspect]
     Active Substance: VENLAFAXINE HYDROCHLORIDE
     Indication: Product used for unknown indication
     Route: 065
  2. INSULIN NOS [Suspect]
     Active Substance: INSULIN NOS
     Indication: Product used for unknown indication
     Route: 065
  3. DIAZEPAM [Suspect]
     Active Substance: DIAZEPAM
     Indication: Product used for unknown indication
     Route: 048
  4. FLUMAZENIL [Concomitant]
     Active Substance: FLUMAZENIL
     Indication: Product used for unknown indication
     Route: 065
  5. TOPIRAMATE [Concomitant]
     Active Substance: TOPIRAMATE
     Indication: Product used for unknown indication
     Route: 065
  6. LURASIDONE [Concomitant]
     Active Substance: LURASIDONE
     Indication: Product used for unknown indication
     Route: 065

REACTIONS (12)
  - Hypoglycaemia [Fatal]
  - Serotonin syndrome [Fatal]
  - Arrhythmic storm [Fatal]
  - Nystagmus [Fatal]
  - Dysarthria [Fatal]
  - Dyskinesia [Fatal]
  - Sinus tachycardia [Fatal]
  - Electrocardiogram QRS complex shortened [Fatal]
  - Depressed level of consciousness [Fatal]
  - Generalised tonic-clonic seizure [Fatal]
  - Hyperinsulinaemia [Fatal]
  - Intentional overdose [Unknown]
